FAERS Safety Report 18112402 (Version 2)
Quarter: 2020Q3

REPORT INFORMATION
  Report Type: Report from Study
  Country: HN (occurrence: HN)
  Receive Date: 20200805
  Receipt Date: 20200820
  Transmission Date: 20201103
  Serious: Yes (Other)
  Sender: FDA-Public Use
  Company Number: NVSC2020HN215617

PATIENT
  Sex: Female
  Weight: 85.26 kg

DRUGS (4)
  1. DIOVAN [Suspect]
     Active Substance: VALSARTAN
     Indication: HYPERTENSION
     Dosage: UNK
     Route: 065
     Dates: start: 2019
  2. CO?DIOVAN [Suspect]
     Active Substance: HYDROCHLOROTHIAZIDE\VALSARTAN
     Dosage: UNK (320/25 MG)
     Route: 065
     Dates: end: 2019
  3. EXELON [Suspect]
     Active Substance: RIVASTIGMINE TARTRATE
     Indication: PRODUCT USED FOR UNKNOWN INDICATION
     Dosage: UNK
     Route: 065
  4. CO?DIOVAN [Suspect]
     Active Substance: HYDROCHLOROTHIAZIDE\VALSARTAN
     Indication: HYPERTENSION
     Dosage: UNK (160/12.5 MG)
     Route: 065

REACTIONS (8)
  - Dementia Alzheimer^s type [Not Recovered/Not Resolved]
  - General physical health deterioration [Unknown]
  - Incorrect dose administered [Unknown]
  - Hypertension [Unknown]
  - Movement disorder [Unknown]
  - Gait disturbance [Unknown]
  - Sleep disorder [Unknown]
  - Amnesia [Unknown]
